FAERS Safety Report 20932211 (Version 2)
Quarter: 2022Q2

REPORT INFORMATION
  Report Type: Spontaneous
  Country: US (occurrence: None)
  Receive Date: 20220608
  Receipt Date: 20220609
  Transmission Date: 20220721
  Serious: No
  Sender: FDA-Public Use
  Company Number: US-ROCHE-2871958

PATIENT
  Sex: Female
  Weight: 65.830 kg

DRUGS (4)
  1. ACTEMRA [Suspect]
     Active Substance: TOCILIZUMAB
     Indication: Giant cell arteritis
     Dosage: STARTED ABOUT 3 WEEKS AGO ;ONGOING: YES 162 MG / 0.9 ML
     Route: 058
     Dates: start: 2021
  2. PREDNISONE [Concomitant]
     Active Substance: PREDNISONE
     Indication: Giant cell arteritis
     Dosage: STARTED COUPLE MONTHS AGO AND WEANING ;ONGOING: YES
     Route: 048
     Dates: start: 2021
  3. FERROUS SULFATE [Concomitant]
     Active Substance: FERROUS SULFATE
     Indication: Anaemia
     Dosage: STARTED 10 TO 15 YEARS AGO ;ONGOING: YES
     Route: 048
  4. NORTRIPTYLINE [Concomitant]
     Active Substance: NORTRIPTYLINE
     Dosage: AS NEEDED STARTED ABOUT 5 TO 6 MONTHS AGO ;ONGOING: YES
     Route: 048

REACTIONS (2)
  - Large intestine polyp [Recovered/Resolved]
  - Fatigue [Recovered/Resolved]

NARRATIVE: CASE EVENT DATE: 20210101
